FAERS Safety Report 24294707 (Version 2)
Quarter: 2024Q3

REPORT INFORMATION
  Report Type: Spontaneous
  Country: PL (occurrence: PL)
  Receive Date: 20240906
  Receipt Date: 20240911
  Transmission Date: 20241016
  Serious: Yes (Other)
  Sender: JAZZ
  Company Number: PL-JAZZ PHARMACEUTICALS-2024-PL-014233

PATIENT

DRUGS (1)
  1. CANNABIDIOL [Suspect]
     Active Substance: CANNABIDIOL
     Indication: Severe myoclonic epilepsy of infancy
     Dosage: 7.5 MILLIGRAM/KILOGRAM, BID
     Route: 048
     Dates: start: 20240812, end: 20240830

REACTIONS (1)
  - Hallucination [Recovering/Resolving]

NARRATIVE: CASE EVENT DATE: 20240830
